FAERS Safety Report 15412017 (Version 1)
Quarter: 2018Q3

REPORT INFORMATION
  Report Type: Spontaneous
  Country: US (occurrence: US)
  Receive Date: 20180913
  Receipt Date: 20180913
  Transmission Date: 20181010
  Serious: No
  Sender: FDA-Public Use
  Company Number: None

PATIENT
  Sex: Female

DRUGS (2)
  1. CAPECITABINE. [Suspect]
     Active Substance: CAPECITABINE
     Indication: PSORIASIS
     Route: 048
     Dates: start: 20180104, end: 20180911
  2. CAPECITABINE. [Suspect]
     Active Substance: CAPECITABINE
     Indication: RHEUMATOID ARTHRITIS
     Route: 048
     Dates: start: 20180104, end: 20180911

REACTIONS (1)
  - Hypoaesthesia [None]
